FAERS Safety Report 17285103 (Version 1)
Quarter: 2020Q1

REPORT INFORMATION
  Report Type: Spontaneous
  Country: US (occurrence: US)
  Receive Date: 20200117
  Receipt Date: 20200117
  Transmission Date: 20200409
  Serious: No
  Sender: FDA-Public Use
  Company Number: US-TARO-2019TAR00675

PATIENT

DRUGS (1)
  1. DESOXIMETASONE CREAM USP 0.25% [Suspect]
     Active Substance: DESOXIMETASONE
     Indication: ECZEMA
     Dosage: UNK UNK, 2X/DAY
     Route: 061
     Dates: start: 2018, end: 20190906

REACTIONS (2)
  - Application site pain [Recovered/Resolved]
  - Product odour abnormal [Recovered/Resolved]

NARRATIVE: CASE EVENT DATE: 2018
